FAERS Safety Report 9305192 (Version 1)
Quarter: 2013Q2

REPORT INFORMATION
  Report Type: Report from Study
  Country: BR (occurrence: BR)
  Receive Date: 20130523
  Receipt Date: 20130523
  Transmission Date: 20140414
  Serious: Yes (Hospitalization, Other)
  Sender: FDA-Public Use
  Company Number: PHHY2013BR051331

PATIENT
  Sex: Female

DRUGS (3)
  1. EXELON [Suspect]
     Indication: DEMENTIA ALZHEIMER^S TYPE
     Dosage: 3 MG (2 CAPSULES OF 1.5MG), DAILY
     Route: 048
     Dates: start: 2011, end: 2012
  2. EXELON [Suspect]
     Dosage: 6 MG (2 CAPSULES OF 3MG), DAILY
     Route: 048
     Dates: start: 2012
  3. ATACAND [Concomitant]
     Indication: HYPERTENSION
     Dosage: 1 DF, DAILY
     Route: 048

REACTIONS (4)
  - Speech disorder [Recovering/Resolving]
  - Gastrointestinal disorder [Recovered/Resolved]
  - Aphagia [Recovered/Resolved]
  - Vomiting [Recovered/Resolved]
